FAERS Safety Report 7217942-4 (Version None)
Quarter: 2011Q1

REPORT INFORMATION
  Report Type: 
  Country: None (occurrence: None)
  Receive Date: 20110110
  Receipt Date: 20101202
  Transmission Date: 20110831
  Serious: Yes (Hospitalization, Disabling, Other)
  Sender: FDA-Public Use
  Company Number: A0860011A

PATIENT
  Age: 58 Year
  Sex: Male

DRUGS (9)
  1. BAKING SODA [Concomitant]
  2. UNSPECIFIED MEDICATION [Concomitant]
  3. GLUCOPHAGE [Concomitant]
  4. UNIVASC [Concomitant]
  5. ALLOPURINOL [Concomitant]
  6. STARLIX [Concomitant]
  7. AVANDIA [Suspect]
     Dosage: 4MG PER DAY
     Route: 048
     Dates: start: 20030101, end: 20051101
  8. LASIX [Concomitant]
  9. ATACAND [Concomitant]

REACTIONS (11)
  - HEART RATE DECREASED [None]
  - ASTHENIA [None]
  - AMNESIA [None]
  - CARDIAC VENTRICULOGRAM [None]
  - STENT PLACEMENT [None]
  - ISCHAEMIC CARDIOMYOPATHY [None]
  - CARDIAC DISORDER [None]
  - CARDIAC FAILURE CONGESTIVE [None]
  - CARDIAC FAILURE [None]
  - MALAISE [None]
  - ANGIOGRAM [None]
